FAERS Safety Report 6100752-9 (Version None)
Quarter: 2009Q1

REPORT INFORMATION
  Report Type: 
  Country: None (occurrence: None)
  Receive Date: 20090303
  Receipt Date: 20080826
  Transmission Date: 20090719
  Serious: No
  Sender: FDA-Public Use
  Company Number: US-B.I. PHARMACEUTICALS,INC./RIDGEFIELD-2008-BP-13820BP

PATIENT
  Age: 62 Year
  Sex: Female

DRUGS (1)
  1. MOBIC [Suspect]

REACTIONS (2)
  - FATIGUE [None]
  - SOMNOLENCE [None]
